FAERS Safety Report 9423800 (Version 2)
Quarter: 2013Q3

REPORT INFORMATION
  Report Type: Spontaneous
  Country: GB (occurrence: GB)
  Receive Date: 20130729
  Receipt Date: 20130801
  Transmission Date: 20140515
  Serious: Yes (Death, Other)
  Sender: FDA-Public Use
  Company Number: GB-009507513-1307GBR014640

PATIENT
  Age: 45 Year
  Sex: Male

DRUGS (5)
  1. ATRIPLA [Suspect]
     Indication: HIV INFECTION
     Dosage: UNK
     Route: 048
     Dates: start: 2008
  2. RALTEGRAVIR POTASSIUM [Suspect]
     Indication: HIV INFECTION
     Dosage: UNK
     Route: 048
     Dates: start: 2008
  3. MONTELUKAST SODIUM [Concomitant]
     Dosage: UNK
     Route: 048
     Dates: start: 2008, end: 2009
  4. DOXORUBICIN HYDROCHLORIDE [Concomitant]
  5. PACLITAXEL [Concomitant]
     Dosage: UNK
     Dates: start: 2009

REACTIONS (1)
  - Immune reconstitution inflammatory syndrome associated Kaposi^s sarcoma [Fatal]
